FAERS Safety Report 15965580 (Version 2)
Quarter: 2019Q2

REPORT INFORMATION
  Report Type: Spontaneous
  Country: US (occurrence: US)
  Receive Date: 20190215
  Receipt Date: 20190618
  Transmission Date: 20190711
  Serious: Yes (Other)
  Sender: FDA-Public Use
  Company Number: US-RIGEL PHARMACEUTICALS, INC.-2018FOS000248

PATIENT
  Age: 68 Year
  Sex: Female

DRUGS (5)
  1. ASPIRIN 81 [Concomitant]
     Active Substance: ASPIRIN
     Indication: PRODUCT USED FOR UNKNOWN INDICATION
     Dosage: 81 MG
  2. TAVALISSE [Suspect]
     Active Substance: FOSTAMATINIB
     Indication: IMMUNE THROMBOCYTOPENIC PURPURA
     Dosage: 100 MG, QOD
     Route: 048
     Dates: start: 2007
  3. VITAMIN D [COLECALCIFEROL] [Concomitant]
     Active Substance: CHOLECALCIFEROL
     Indication: PRODUCT USED FOR UNKNOWN INDICATION
  4. CRESTOR [Concomitant]
     Active Substance: ROSUVASTATIN CALCIUM
     Indication: PRODUCT USED FOR UNKNOWN INDICATION
     Dosage: UNK
  5. AMLODIPINE [Concomitant]
     Active Substance: AMLODIPINE BESYLATE
     Indication: PRODUCT USED FOR UNKNOWN INDICATION

REACTIONS (8)
  - Upper-airway cough syndrome [Recovered/Resolved]
  - Pyrexia [Recovered/Resolved]
  - Product use issue [Unknown]
  - Irritable bowel syndrome [Not Recovered/Not Resolved]
  - Cough [Recovered/Resolved]
  - Ear congestion [Recovered/Resolved]
  - Upper respiratory tract infection [Unknown]
  - Autoimmune colitis [Not Recovered/Not Resolved]

NARRATIVE: CASE EVENT DATE: 201812
